FAERS Safety Report 18597437 (Version 1)
Quarter: 2020Q4

REPORT INFORMATION
  Report Type: Report from Study
  Country: None (occurrence: US)
  Receive Date: 20201209
  Receipt Date: 20201209
  Transmission Date: 20210114
  Serious: Yes (Other)
  Sender: FDA-Public Use
  Company Number: US-ABBVIE-20K-163-3676715-00

PATIENT
  Age: 67 Year
  Sex: Female

DRUGS (1)
  1. SYNTHROID [Suspect]
     Active Substance: LEVOTHYROXINE SODIUM
     Indication: PRODUCT USED FOR UNKNOWN INDICATION
     Route: 048

REACTIONS (16)
  - Thyroid mass [Unknown]
  - Blood calcium increased [Unknown]
  - Arthropathy [Unknown]
  - Feeling abnormal [Unknown]
  - Abdominal pain upper [Unknown]
  - Taste disorder [Unknown]
  - Procedural pain [Unknown]
  - Back pain [Unknown]
  - Panic attack [Unknown]
  - Alopecia [Unknown]
  - Unevaluable event [Unknown]
  - Poor quality sleep [Unknown]
  - Dysstasia [Unknown]
  - Decreased appetite [Unknown]
  - Hypothyroidism [Unknown]
  - Hyperthyroidism [Unknown]

NARRATIVE: CASE EVENT DATE: 2020
